FAERS Safety Report 12945875 (Version 2)
Quarter: 2017Q1

REPORT INFORMATION
  Report Type: Spontaneous
  Country: AU (occurrence: AU)
  Receive Date: 20161116
  Receipt Date: 20170310
  Transmission Date: 20170428
  Serious: Yes (Hospitalization, Other)
  Sender: FDA-Public Use
  Company Number: AU-BAUSCH-BL-2016-027724

PATIENT
  Age: 53 Year
  Sex: Female

DRUGS (2)
  1. PHENYLEPHRINE [Suspect]
     Active Substance: PHENYLEPHRINE\PHENYLEPHRINE HYDROCHLORIDE
     Indication: IRIDOCYCLITIS
     Route: 031
  2. PREDNEFRIN FORTE [Suspect]
     Active Substance: PHENYLEPHRINE HYDROCHLORIDE\PREDNISOLONE ACETATE
     Indication: IRIDOCYCLITIS
     Dosage: 0.12% PHENYLEPHRINE AND 1% PREDNISOLONE ACETATE; ADMINISTERED ON AN HOURLY BASIS
     Route: 047

REACTIONS (1)
  - Stress cardiomyopathy [Recovered/Resolved]
